FAERS Safety Report 23240558 (Version 1)
Quarter: 2023Q4

REPORT INFORMATION
  Report Type: Spontaneous
  Country: US (occurrence: None)
  Receive Date: 20231128
  Receipt Date: 20231128
  Transmission Date: 20240109
  Serious: Yes (Other)
  Sender: FDA-Public Use
  Company Number: None

PATIENT
  Age: 71 Year
  Sex: Male
  Weight: 96.3 kg

DRUGS (9)
  1. MOUNJARO [Suspect]
     Active Substance: TIRZEPATIDE
     Indication: Type 2 diabetes mellitus
     Dosage: OTHER STRENGTH : 10MG\0.5ML;?OTHER QUANTITY : 1 INJECTION(S);?FREQUENCY : WEEKLY;?
     Route: 030
     Dates: start: 20230404, end: 20231128
  2. BupropionHCL ER [Concomitant]
  3. METHYLPHENIDATE [Concomitant]
     Active Substance: METHYLPHENIDATE
  4. ATORVASTATIN [Concomitant]
     Active Substance: ATORVASTATIN
  5. LISINOPRIL [Concomitant]
     Active Substance: LISINOPRIL
  6. GLIPIZIDE [Concomitant]
     Active Substance: GLIPIZIDE
  7. ESZOPICLONE [Concomitant]
     Active Substance: ESZOPICLONE
  8. CYCLOBENZAPRINE [Concomitant]
     Active Substance: CYCLOBENZAPRINE
  9. NIACIN [Concomitant]
     Active Substance: NIACIN

REACTIONS (2)
  - Flatulence [None]
  - Frequent bowel movements [None]

NARRATIVE: CASE EVENT DATE: 20231123
